FAERS Safety Report 20021120 (Version 1)
Quarter: 2021Q4

REPORT INFORMATION
  Report Type: Spontaneous
  Country: DE (occurrence: DE)
  Receive Date: 20211101
  Receipt Date: 20211101
  Transmission Date: 20220303
  Serious: Yes (Hospitalization, Other)
  Sender: FDA-Public Use
  Company Number: DE-ADRED-06971-01

PATIENT
  Age: 56 Year
  Sex: Male
  Weight: 85 kg

DRUGS (2)
  1. IBUPROFEN [Suspect]
     Active Substance: IBUPROFEN
     Indication: Product used for unknown indication
     Dosage: 600 MILLIGRAM (600 MG, 1-1-1-0)
  2. METAMIZOLE [Concomitant]
     Active Substance: METAMIZOLE
     Dosage: AS NEEDED

REACTIONS (6)
  - Tachypnoea [Unknown]
  - General physical health deterioration [Unknown]
  - Pain in extremity [Unknown]
  - Weight increased [Unknown]
  - Atrial fibrillation [Unknown]
  - Tachycardia [Unknown]
